FAERS Safety Report 14456837 (Version 2)
Quarter: 2018Q2

REPORT INFORMATION
  Report Type: Spontaneous
  Country: DE (occurrence: DE)
  Receive Date: 20180130
  Receipt Date: 20180418
  Transmission Date: 20180711
  Serious: Yes (Hospitalization)
  Sender: FDA-Public Use
  Company Number: DE-AXELLIA-001326

PATIENT
  Age: 17 Year
  Sex: Female
  Weight: 68 kg

DRUGS (4)
  1. PIPERACILLIN/TAZOBACTAM [Concomitant]
     Indication: PYREXIA
     Route: 042
  2. VANCOMYCIN [Suspect]
     Active Substance: VANCOMYCIN
     Indication: C-REACTIVE PROTEIN INCREASED
     Dosage: 500/1000MG
     Route: 042
  3. METHOTREXATE. [Suspect]
     Active Substance: METHOTREXATE
     Indication: OSTEOSARCOMA
     Dosage: EURAMOS1?ALSO RECEIVED IN OCT-2017
     Route: 042
     Dates: end: 201710
  4. MEROPENEM. [Suspect]
     Active Substance: MEROPENEM
     Indication: C-REACTIVE PROTEIN INCREASED
     Dosage: 500/1000MG
     Route: 042

REACTIONS (9)
  - Acute kidney injury [Recovered/Resolved]
  - Drug level increased [Recovered/Resolved]
  - Prothrombin time prolonged [Recovered/Resolved]
  - Anaphylactic reaction [Recovered/Resolved]
  - Blood lactate dehydrogenase increased [Recovered/Resolved]
  - Off label use [Unknown]
  - Transaminases increased [Recovered/Resolved]
  - Chills [Recovered/Resolved]
  - Nausea [Recovered/Resolved]

NARRATIVE: CASE EVENT DATE: 201706
